FAERS Safety Report 4597253-6 (Version None)
Quarter: 2005Q1

REPORT INFORMATION
  Report Type: 
  Country: None (occurrence: None)
  Receive Date: 20050303
  Receipt Date: 20050204
  Transmission Date: 20050727
  Serious: Yes (Other)
  Sender: FDA-Public Use
  Company Number: PHRM2005FR00739

PATIENT
  Age: 70 Year
  Sex: Male

DRUGS (6)
  1. LAMISIL [Suspect]
     Indication: NAIL TINEA
     Dosage: 250 MG, QD
     Route: 048
     Dates: start: 20040604, end: 20040611
  2. CORDARONE [Concomitant]
     Indication: CORONARY ARTERY DISEASE
     Dosage: 200 MG/DAY
     Route: 048
  3. KARDEGIC [Concomitant]
     Indication: CORONARY ARTERY DISEASE
     Dosage: 75 MG/DAY
     Route: 048
  4. JOSIR [Concomitant]
     Indication: BENIGN PROSTATIC HYPERPLASIA
     Dosage: 0.4 MG/DAY
     Route: 048
  5. LIPANTHYL ^FOURNIER^ [Concomitant]
     Indication: HYPERLIPIDAEMIA
     Dosage: 160 MG/DAY
     Route: 048
  6. TAREG [Concomitant]
     Indication: CORONARY ARTERY DISEASE
     Dosage: 80 MG/DAY
     Route: 048

REACTIONS (16)
  - ABDOMINAL PAIN [None]
  - AGRANULOCYTOSIS [None]
  - ALANINE AMINOTRANSFERASE INCREASED [None]
  - ANOREXIA [None]
  - ASPARTATE AMINOTRANSFERASE INCREASED [None]
  - ASTHENIA [None]
  - CHILLS [None]
  - DYSPEPSIA [None]
  - GAMMA-GLUTAMYLTRANSFERASE INCREASED [None]
  - HEADACHE [None]
  - INFLUENZA [None]
  - LIVER DISORDER [None]
  - LIVER FUNCTION TEST ABNORMAL [None]
  - MYALGIA [None]
  - PYREXIA [None]
  - WEIGHT INCREASED [None]
